FAERS Safety Report 19709877 (Version 1)
Quarter: 2021Q3

REPORT INFORMATION
  Report Type: Spontaneous
  Country: NG (occurrence: NG)
  Receive Date: 20210816
  Receipt Date: 20210816
  Transmission Date: 20211014
  Serious: Yes (Death, Other)
  Sender: FDA-Public Use
  Company Number: NG-PFIZER INC-202101006308

PATIENT
  Age: 62 Year
  Sex: Female

DRUGS (2)
  1. TYGACIL [Suspect]
     Active Substance: TIGECYCLINE
     Dosage: 50 MG, TWICE A DAY (12 HOURLY)
     Route: 042
     Dates: start: 20210716, end: 20210718
  2. MERONEM [Suspect]
     Active Substance: MEROPENEM
     Dosage: 500 MG, THRICE A DAY (8 HOURLY)
     Route: 042
     Dates: start: 20210709, end: 20210710

REACTIONS (1)
  - Death [Fatal]

NARRATIVE: CASE EVENT DATE: 20210720
